FAERS Safety Report 6105595-8 (Version None)
Quarter: 2009Q1

REPORT INFORMATION
  Report Type: 
  Country: None (occurrence: None)
  Receive Date: 20090304
  Receipt Date: 20090304
  Transmission Date: 20090719
  Serious: Yes (Life-Threatening)
  Sender: FDA-Public Use
  Company Number: None

PATIENT
  Age: 63 Year
  Sex: Female
  Weight: 90.7194 kg

DRUGS (1)
  1. BAYER HEART HEALTH ? ? [Suspect]
     Indication: CARDIOVASCULAR EVENT PROPHYLAXIS
     Dosage: 1X A DAY PO
     Route: 048
     Dates: start: 20090201, end: 20090301

REACTIONS (1)
  - BLOOD PRESSURE INCREASED [None]
